FAERS Safety Report 13797145 (Version 1)
Quarter: 2017Q3

REPORT INFORMATION
  Report Type: Spontaneous
  Country: US (occurrence: US)
  Receive Date: 20170727
  Receipt Date: 20170727
  Transmission Date: 20171127
  Serious: No
  Sender: FDA-Public Use
  Company Number: US-BAUSCH-BL-2016-031995

PATIENT
  Age: 81 Year
  Sex: Male
  Weight: 95.34 kg

DRUGS (7)
  1. TRAVATAN [Concomitant]
     Active Substance: TRAVOPROST
     Indication: INTRAOCULAR PRESSURE INCREASED
     Dosage: ONE IN EACH TIME AT BEDTIME
     Route: 047
  2. METFORMIN [Concomitant]
     Active Substance: METFORMIN HYDROCHLORIDE
     Indication: DIABETES MELLITUS
     Route: 048
  3. ISTALOL [Suspect]
     Active Substance: TIMOLOL MALEATE
     Dosage: 1 DROP TWICE DAILY INTO EACH EYE
     Route: 047
     Dates: start: 20161206, end: 20161209
  4. ISTALOL [Suspect]
     Active Substance: TIMOLOL MALEATE
     Dosage: 1 DROP TO BOTH EYES IN THE MORNING
     Route: 047
     Dates: start: 20161210
  5. ISTALOL [Suspect]
     Active Substance: TIMOLOL MALEATE
     Indication: INTRAOCULAR PRESSURE INCREASED
     Dosage: 1 DROP TO BOTH EYES
     Route: 047
     Dates: start: 20161205, end: 20161205
  6. METOPROLOL. [Concomitant]
     Active Substance: METOPROLOL
     Indication: HYPERTENSION
     Dosage: ONE-HALF TABLET TWICE DAILY
     Route: 048
     Dates: start: 2003
  7. GLYBURIDE. [Concomitant]
     Active Substance: GLYBURIDE
     Indication: DIABETES MELLITUS
     Route: 048
     Dates: start: 2003

REACTIONS (3)
  - Hypotension [Unknown]
  - Heart rate decreased [Unknown]
  - Dizziness [Recovered/Resolved]

NARRATIVE: CASE EVENT DATE: 201612
